FAERS Safety Report 5427955-0 (Version None)
Quarter: 2007Q3

REPORT INFORMATION
  Report Type: 
  Country: None (occurrence: None)
  Receive Date: 20070828
  Receipt Date: 20070817
  Transmission Date: 20080115
  Serious: Yes (Hospitalization)
  Sender: FDA-Public Use
  Company Number: US-JNJFOC-20070803924

PATIENT
  Sex: Male

DRUGS (6)
  1. REMICADE [Suspect]
     Indication: CROHN'S DISEASE
     Route: 042
  2. LISINOPRIL [Concomitant]
     Indication: BLOOD PRESSURE
  3. SIMVASTATIN [Concomitant]
     Indication: HYPERCHOLESTEROLAEMIA
  4. OXYCODONE HCL [Concomitant]
     Indication: PAIN
  5. COUMADIN [Concomitant]
     Indication: CARDIAC FAILURE CONGESTIVE
  6. COREG [Concomitant]
     Indication: CARDIAC FAILURE CONGESTIVE

REACTIONS (5)
  - ATRIAL FIBRILLATION [None]
  - BACTERAEMIA [None]
  - CARDIAC FAILURE CONGESTIVE [None]
  - HYPERTENSION [None]
  - TACHYCARDIA [None]
